FAERS Safety Report 20704811 (Version 1)
Quarter: 2022Q2

REPORT INFORMATION
  Report Type: Spontaneous
  Country: US (occurrence: US)
  Receive Date: 20220413
  Receipt Date: 20220413
  Transmission Date: 20220720
  Serious: No
  Sender: FDA-Public Use
  Company Number: US-PFIZER INC-202101199504

PATIENT
  Age: 67 Year
  Sex: Female
  Weight: 81.65 kg

DRUGS (2)
  1. EPINEPHRINE\LIDOCAINE HYDROCHLORIDE [Suspect]
     Active Substance: EPINEPHRINE\LIDOCAINE HYDROCHLORIDE
     Indication: Local anaesthesia
     Dosage: UNK
  2. LIDOCAINE HYDROCHLORIDE [Suspect]
     Active Substance: LIDOCAINE HYDROCHLORIDE
     Indication: Local anaesthesia
     Dosage: UNK

REACTIONS (11)
  - Dysgeusia [Recovered/Resolved]
  - Lip swelling [Unknown]
  - Oral herpes [Unknown]
  - Paraesthesia oral [Unknown]
  - Dry mouth [Recovered/Resolved]
  - Oral discomfort [Not Recovered/Not Resolved]
  - Hypoaesthesia oral [Not Recovered/Not Resolved]
  - Drug hypersensitivity [Unknown]
  - Chapped lips [Unknown]
  - Oral mucosal blistering [Unknown]
  - Lip dry [Unknown]

NARRATIVE: CASE EVENT DATE: 20210823
